FAERS Safety Report 4826375-7 (Version None)
Quarter: 2005Q4

REPORT INFORMATION
  Report Type: 
  Country: None (occurrence: None)
  Receive Date: 20051111
  Receipt Date: 20051103
  Transmission Date: 20060501
  Serious: Yes (Life-Threatening, Hospitalization)
  Sender: FDA-Public Use
  Company Number: LB-ABBOTT-05P-093-0316416-00

PATIENT
  Age: 31 Year
  Sex: Female

DRUGS (3)
  1. DEPAKINE INJECTION [Suspect]
     Indication: EPILEPSY
     Route: 042
     Dates: start: 20050915, end: 20050921
  2. DEPAKINE INJECTION [Suspect]
     Indication: LOSS OF CONSCIOUSNESS
  3. CARBAMAZEPINE [Concomitant]
     Indication: DRUG USE FOR UNKNOWN INDICATION
     Route: 048

REACTIONS (4)
  - COGNITIVE DISORDER [None]
  - ENCEPHALOPATHY [None]
  - HALLUCINATION [None]
  - LOSS OF CONSCIOUSNESS [None]
